FAERS Safety Report 9659694 (Version 4)
Quarter: 2014Q1

REPORT INFORMATION
  Report Type: Report from Study
  Country: CA (occurrence: CA)
  Receive Date: 20131031
  Receipt Date: 20140113
  Transmission Date: 20141002
  Serious: Yes (Hospitalization, Other)
  Sender: FDA-Public Use
  Company Number: CA-JNJFOC-20131016903

PATIENT
  Age: 36 Year
  Sex: Male
  Weight: 59 kg

DRUGS (5)
  1. REMICADE [Suspect]
     Indication: CROHN^S DISEASE
     Dosage: 3 LOADING DOSE 0,2,6 WEEKS
     Route: 042
     Dates: start: 20131211
  2. REMICADE [Suspect]
     Indication: CROHN^S DISEASE
     Dosage: 2 LOADING AT 0,2,6 WEEK
     Route: 042
     Dates: start: 20131029
  3. REMICADE [Suspect]
     Indication: CROHN^S DISEASE
     Dosage: 1ST DOSE; AT 0, 2, 6 AND THEN EVERY 8 WEEKS
     Route: 042
     Dates: start: 20131015
  4. PREDNISONE [Concomitant]
     Route: 065
  5. ANTIBIOTICS NOS [Concomitant]
     Route: 042

REACTIONS (8)
  - Gastrointestinal inflammation [Recovered/Resolved]
  - Abdominal pain [Recovered/Resolved]
  - Ileal stenosis [Recovering/Resolving]
  - Abscess [Unknown]
  - Arthropathy [Unknown]
  - Lung disorder [Unknown]
  - Liver disorder [Unknown]
  - Renal disorder [Unknown]
